FAERS Safety Report 4833399-2 (Version None)
Quarter: 2005Q4

REPORT INFORMATION
  Report Type: 
  Country: None (occurrence: None)
  Receive Date: 20051117
  Receipt Date: 20051104
  Transmission Date: 20060501
  Serious: Yes (Death, Other)
  Sender: FDA-Public Use
  Company Number: 2005-DE-04586GD

PATIENT

DRUGS (1)
  1. MORPHINE [Suspect]
     Indication: PAIN

REACTIONS (1)
  - DELIRIUM [None]
